FAERS Safety Report 5270606-9 (Version None)
Quarter: 2007Q1

REPORT INFORMATION
  Report Type: 
  Country: None (occurrence: None)
  Receive Date: 20070315
  Receipt Date: 20070307
  Transmission Date: 20070707
  Serious: Yes (Death)
  Sender: FDA-Public Use
  Company Number: 163-21880-06110732

PATIENT
  Age: 68 Year
  Sex: Male

DRUGS (1)
  1. REVLIMID [Suspect]
     Indication: MYELODYSPLASTIC SYNDROME
     Dosage: 10 MG, 1 IN 1 D, ORAL
     Route: 048
     Dates: start: 20061012, end: 20061023

REACTIONS (5)
  - ANAEMIA [None]
  - DISEASE PROGRESSION [None]
  - DIZZINESS [None]
  - MYELODYSPLASTIC SYNDROME [None]
  - PROSTATE CANCER [None]
